FAERS Safety Report 9321357 (Version 2)
Quarter: 2013Q2

REPORT INFORMATION
  Report Type: Spontaneous
  Country: JP (occurrence: JP)
  Receive Date: 20130531
  Receipt Date: 20130604
  Transmission Date: 20140414
  Serious: Yes (Other)
  Sender: FDA-Public Use
  Company Number: JP-PFIZER INC-2013166178

PATIENT
  Sex: 0

DRUGS (3)
  1. LYRICA [Suspect]
     Dosage: 25 MG/DAY
     Route: 048
     Dates: start: 20130409
  2. LYRICA [Suspect]
     Dosage: 75 MG/DAY
     Route: 048
  3. LYRICA [Suspect]
     Dosage: 150 MG/DAY
     Route: 048
     Dates: end: 20130327

REACTIONS (7)
  - Haemorrhage subcutaneous [Unknown]
  - Musculoskeletal stiffness [Unknown]
  - Musculoskeletal pain [Recovered/Resolved]
  - Chest pain [Unknown]
  - Back pain [Unknown]
  - Dizziness [Unknown]
  - Somnolence [Unknown]
